FAERS Safety Report 4452103-3 (Version None)
Quarter: 2004Q3

REPORT INFORMATION
  Report Type: 
  Country: None (occurrence: None)
  Receive Date: 20040913
  Receipt Date: 20040721
  Transmission Date: 20050211
  Serious: No
  Sender: FDA-Public Use
  Company Number: 2004-BP-05906BP

PATIENT
  Age: 65 Year
  Sex: Male

DRUGS (8)
  1. SPIRIVA [Suspect]
     Indication: CHRONIC OBSTRUCTIVE AIRWAYS DISEASE
     Dosage: (18 MCG), IH
     Route: 055
  2. ADVAIR (SERETIDE MITE) [Concomitant]
  3. COMBIVENT [Concomitant]
  4. BECONASE (BECLOMETASONE DIPROPIONATE) [Concomitant]
  5. CELEXA [Concomitant]
  6. NEURONTIN [Concomitant]
  7. VERAPAMIL [Concomitant]
  8. DIAZIDE (GLICLAZIDE) [Concomitant]

REACTIONS (2)
  - INITIAL INSOMNIA [None]
  - INSOMNIA [None]
